FAERS Safety Report 5630040-6 (Version None)
Quarter: 2008Q1

REPORT INFORMATION
  Report Type: 
  Country: None (occurrence: None)
  Receive Date: 20080218
  Receipt Date: 20080214
  Transmission Date: 20080703
  Serious: Yes (Death)
  Sender: FDA-Public Use
  Company Number: PHBS2008NL02087

PATIENT
  Age: 56 Year
  Sex: Male
  Weight: 70 kg

DRUGS (7)
  1. ASCAL [Concomitant]
     Dosage: 80 MG/D
     Route: 048
  2. COVERSYL [Concomitant]
     Dosage: 4 MG/D
     Route: 048
  3. BECOTIDE [Concomitant]
  4. VENTOLIN [Concomitant]
  5. ARTHROTEC [Concomitant]
     Dosage: 50 MG/D
     Route: 048
  6. ATARAX [Concomitant]
     Dosage: 20 MG/D
     Route: 048
  7. MYFORTIC [Suspect]
     Indication: DERMATITIS ATOPIC
     Dosage: 720 MG, BID
     Route: 048
     Dates: start: 20071122

REACTIONS (1)
  - DEATH [None]
